FAERS Safety Report 8306397-4 (Version None)
Quarter: 2012Q2

REPORT INFORMATION
  Report Type: 
  Country: None (occurrence: None)
  Receive Date: 20120423
  Receipt Date: 20120418
  Transmission Date: 20120825
  Serious: Yes (Death)
  Sender: FDA-Public Use
  Company Number: ES-ELI_LILLY_AND_COMPANY-ES201204006412

PATIENT
  Sex: Male

DRUGS (2)
  1. HUMALOG MIX 50/50 [Suspect]
     Indication: TYPE 2 DIABETES MELLITUS
     Dosage: 15 U, EACH MORNING
  2. HUMALOG MIX 50/50 [Suspect]
     Dosage: 30 U, OTHER

REACTIONS (1)
  - INTESTINAL OBSTRUCTION [None]
